FAERS Safety Report 11777862 (Version 3)
Quarter: 2016Q3

REPORT INFORMATION
  Report Type: Spontaneous
  Country: DE (occurrence: DE)
  Receive Date: 20151125
  Receipt Date: 20160705
  Transmission Date: 20161109
  Serious: Yes (Life-Threatening)
  Sender: FDA-Public Use
  Company Number: DE-009507513-1511DEU012749

PATIENT
  Age: 59 Year
  Sex: Female

DRUGS (14)
  1. BISOPROLOL [Concomitant]
     Active Substance: BISOPROLOL
     Dosage: TWICE A DAY, 5 MG
  2. REMERGIL [Suspect]
     Active Substance: MIRTAZAPINE
     Dosage: 30 MG, (0-0-0-30 MG) ONCE DAILY
     Route: 048
  3. CYMBALTA [Suspect]
     Active Substance: DULOXETINE HYDROCHLORIDE
     Dosage: 120-0-0 MG, ONCE A DAY
     Route: 048
  4. OXYGESIC [Suspect]
     Active Substance: OXYCODONE
     Dosage: 15-15-0-20 MG, UNK
     Route: 048
  5. SIMVASTATIN MEPHA [Concomitant]
     Dosage: 40 MG, ONCE A DAY
  6. IBUPROFEN. [Concomitant]
     Active Substance: IBUPROFEN
     Dosage: UNK
  7. PANTOPRAZOLE [Concomitant]
     Active Substance: PANTOPRAZOLE SODIUM
     Dosage: UNK
  8. LYRICA [Suspect]
     Active Substance: PREGABALIN
     Dosage: 75-0-100 MG, TOTAL DAILY DOSE 175 MG
     Route: 048
  9. VALERIAN [Concomitant]
     Active Substance: VALERIAN
     Dosage: 450 MG, ONCE A DAY
  10. ASPIRIN. [Concomitant]
     Active Substance: ASPIRIN
     Dosage: 100 MG, ONCE A DAY
  11. RAMIPRIL. [Concomitant]
     Active Substance: RAMIPRIL
     Dosage: 2.5 MG, ONCE A DAY
  12. TORSEMIDE. [Concomitant]
     Active Substance: TORSEMIDE
     Dosage: 2.5 MG, ONCE A DAY
  13. MCP (METOCLOPRAMIDE HYDROCHLORIDE) [Concomitant]
     Dosage: 15 DROPS, THRICE A DAY
  14. ZOPICLONE [Concomitant]
     Active Substance: ZOPICLONE
     Dosage: 3.75 MG, ONCE A DAY

REACTIONS (1)
  - Cardiac arrest [Recovered/Resolved]

NARRATIVE: CASE EVENT DATE: 20140109
